FAERS Safety Report 6236199-4 (Version None)
Quarter: 2009Q2

REPORT INFORMATION
  Report Type: 
  Country: None (occurrence: None)
  Receive Date: 20090619
  Receipt Date: 20090611
  Transmission Date: 20091009
  Serious: Yes (Other)
  Sender: FDA-Public Use
  Company Number: IE-PFIZER INC-2009226245

PATIENT
  Age: 75 Year

DRUGS (6)
  1. TOLTERODINE TARTRATE [Suspect]
     Indication: POLLAKIURIA
     Dosage: 2 MG, 1X/DAY
     Dates: start: 20090421, end: 20090508
  2. ZIMOVANE [Concomitant]
  3. LESCOL [Concomitant]
  4. MOTILIUM [Concomitant]
  5. PARACETAMOL [Concomitant]
  6. TRAMADOL HYDROCHLORIDE [Concomitant]

REACTIONS (3)
  - CHEST DISCOMFORT [None]
  - HYPERTENSION [None]
  - URINARY RETENTION [None]
